FAERS Safety Report 10809361 (Version 1)
Quarter: 2015Q1

REPORT INFORMATION
  Report Type: Report from Study
  Country: US (occurrence: US)
  Receive Date: 20150217
  Receipt Date: 20150217
  Transmission Date: 20150721
  Serious: No
  Sender: FDA-Public Use
  Company Number: US-ABBVIE-14K-163-1267818-00

PATIENT
  Age: 49 Year
  Sex: Male

DRUGS (4)
  1. HUMIRA [Suspect]
     Active Substance: ADALIMUMAB
     Indication: RHEUMATOID ARTHRITIS
     Dates: start: 20140417
  2. ZORVOLEX [Concomitant]
     Active Substance: DICLOFENAC
     Indication: INFLAMMATION
  3. SULINDAC. [Suspect]
     Active Substance: SULINDAC
     Indication: PRODUCT USED FOR UNKNOWN INDICATION
     Dates: end: 2014
  4. HYDROXYCHLOROQUINE [Concomitant]
     Active Substance: HYDROXYCHLOROQUINE
     Indication: RHEUMATOID ARTHRITIS
     Route: 048

REACTIONS (4)
  - Abdominal discomfort [Unknown]
  - Rheumatoid arthritis [Recovering/Resolving]
  - Drug effect decreased [Not Recovered/Not Resolved]
  - Abdominal pain upper [Recovering/Resolving]

NARRATIVE: CASE EVENT DATE: 2014
